FAERS Safety Report 7741528-6 (Version None)
Quarter: 2011Q3

REPORT INFORMATION
  Report Type: 
  Country: None (occurrence: None)
  Receive Date: 20110909
  Receipt Date: 20110831
  Transmission Date: 20111222
  Serious: Yes (Hospitalization, Other)
  Sender: FDA-Public Use
  Company Number: US-ASTRAZENECA-2011SE52259

PATIENT
  Sex: Female

DRUGS (1)
  1. NEXIUM [Suspect]
     Route: 048
     Dates: start: 19960101

REACTIONS (3)
  - OSTEOPENIA [None]
  - INCORRECT DRUG ADMINISTRATION DURATION [None]
  - CARCINOID TUMOUR OF THE STOMACH [None]
